FAERS Safety Report 8296636-0 (Version None)
Quarter: 2012Q2

REPORT INFORMATION
  Report Type: 
  Country: None (occurrence: None)
  Receive Date: 20120418
  Receipt Date: 20120418
  Transmission Date: 20120825
  Serious: Yes (Life-Threatening, Hospitalization, Other)
  Sender: FDA-Public Use
  Company Number: None

PATIENT
  Sex: Male
  Weight: 88.904 kg

DRUGS (2)
  1. PRADAXA [Suspect]
     Indication: ATRIAL FIBRILLATION
     Dosage: ONE CAPSULE
     Route: 048
     Dates: start: 20110523, end: 20120215
  2. PRADAXA [Suspect]
     Indication: ANTICOAGULANT THERAPY
     Dosage: ONE CAPSULE
     Route: 048
     Dates: start: 20110523, end: 20120215

REACTIONS (1)
  - GASTROINTESTINAL HAEMORRHAGE [None]
